FAERS Safety Report 20862925 (Version 2)
Quarter: 2022Q4

REPORT INFORMATION
  Report Type: Spontaneous
  Country: GB (occurrence: GB)
  Receive Date: 20220523
  Receipt Date: 20221021
  Transmission Date: 20230113
  Serious: Yes (Disabling)
  Sender: FDA-Public Use
  Company Number: GB-MHRA-MED-202205160947535970-NYM7S

PATIENT
  Sex: Male

DRUGS (1)
  1. ODEFSEY [Suspect]
     Active Substance: EMTRICITABINE\RILPIVIRINE HYDROCHLORIDE\TENOFOVIR ALAFENAMIDE FUMARATE
     Indication: Product used for unknown indication
     Dosage: 1 DOSAGE FORM
     Route: 065

REACTIONS (1)
  - Feeling abnormal [Not Recovered/Not Resolved]
